FAERS Safety Report 8956230 (Version 2)
Quarter: 2013Q2

REPORT INFORMATION
  Report Type: Spontaneous
  Country: IN (occurrence: IN)
  Receive Date: 20121210
  Receipt Date: 20130426
  Transmission Date: 20140414
  Serious: Yes (Hospitalization)
  Sender: FDA-Public Use
  Company Number: PHHY2012IN111335

PATIENT
  Sex: Female

DRUGS (4)
  1. RISPERIDONE [Suspect]
     Dosage: 2 MG PER DAY
  2. TRIHEXYPHENIDYL [Concomitant]
     Dosage: 4 MG, UNK
  3. CLONAZEPAM [Concomitant]
     Dosage: 2 MG, UNK
  4. VITAMIN E [Concomitant]
     Dosage: 400 MG, UNK

REACTIONS (6)
  - Torticollis [Recovered/Resolved]
  - Musculoskeletal discomfort [Recovered/Resolved]
  - Oromandibular dystonia [Recovered/Resolved]
  - Hypophagia [Recovered/Resolved]
  - Mutism [Recovered/Resolved]
  - Muscle rigidity [Recovered/Resolved]
